FAERS Safety Report 5577670-8 (Version None)
Quarter: 2007Q4

REPORT INFORMATION
  Report Type: 
  Country: None (occurrence: None)
  Receive Date: 20071231
  Receipt Date: 20071221
  Transmission Date: 20080405
  Serious: Yes (Hospitalization)
  Sender: FDA-Public Use
  Company Number: AR-BRISTOL-MYERS SQUIBB COMPANY-14027221

PATIENT
  Age: 38 Year
  Sex: Male

DRUGS (3)
  1. EFAVIRENZ [Suspect]
     Route: 048
  2. LAMIVUDINE [Concomitant]
     Indication: HIV INFECTION
  3. ZIDOVUDINE [Concomitant]
     Indication: HIV INFECTION

REACTIONS (1)
  - NON-HODGKIN'S LYMPHOMA [None]
